FAERS Safety Report 13616584 (Version 1)
Quarter: 2017Q2

REPORT INFORMATION
  Report Type: Spontaneous
  Country: US (occurrence: US)
  Receive Date: 20170606
  Receipt Date: 20170606
  Transmission Date: 20170830
  Serious: No
  Sender: FDA-Public Use
  Company Number: US-SA-2016SA096483

PATIENT
  Age: 62 Year
  Sex: Female

DRUGS (8)
  1. SOLOSTAR [Suspect]
     Active Substance: DEVICE
     Indication: TYPE 2 DIABETES MELLITUS
     Dates: start: 201605
  2. LANTUS SOLOSTAR [Suspect]
     Active Substance: INSULIN GLARGINE
     Indication: TYPE 2 DIABETES MELLITUS
     Dosage: DOSE:10 UNIT(S)
     Route: 065
     Dates: start: 201605
  3. APIDRA SOLOSTAR [Concomitant]
     Active Substance: INSULIN GLULISINE
     Dosage: DOSE:8 UNIT(S)
  4. SOLOSTAR [Concomitant]
     Active Substance: DEVICE
     Dates: start: 2014
  5. APIDRA SOLOSTAR [Concomitant]
     Active Substance: INSULIN GLULISINE
     Dosage: DOSE:5 UNIT(S)
     Dates: start: 2014
  6. LEVEMIR [Concomitant]
     Active Substance: INSULIN DETEMIR
  7. APIDRA SOLOSTAR [Concomitant]
     Active Substance: INSULIN GLULISINE
     Dosage: DOSE:10 UNIT(S)
  8. SOLOSTAR [Concomitant]
     Active Substance: DEVICE

REACTIONS (2)
  - Feeling abnormal [Unknown]
  - Device issue [Unknown]

NARRATIVE: CASE EVENT DATE: 201605
